FAERS Safety Report 21142382 (Version 1)
Quarter: 2022Q3

REPORT INFORMATION
  Report Type: Spontaneous
  Country: US (occurrence: US)
  Receive Date: 20220728
  Receipt Date: 20220728
  Transmission Date: 20221027
  Serious: No
  Sender: FDA-Public Use
  Company Number: US-TEVA-2022-US-2056467

PATIENT
  Age: 54 Year
  Sex: Female
  Weight: 58.97 kg

DRUGS (1)
  1. AJOVY [Suspect]
     Active Substance: FREMANEZUMAB-VFRM
     Indication: Migraine
     Dosage: 225 MG / 1.5 ML
     Route: 065
     Dates: start: 2022

REACTIONS (4)
  - Therapeutic product effect decreased [Unknown]
  - Drug ineffective [Unknown]
  - Injection site urticaria [Recovered/Resolved]
  - Injection site pruritus [Recovered/Resolved]

NARRATIVE: CASE EVENT DATE: 20220101
